FAERS Safety Report 9511579 (Version 1)
Quarter: 2013Q3

REPORT INFORMATION
  Report Type: Spontaneous
  Country: US (occurrence: None)
  Receive Date: 20130909
  Receipt Date: 20130909
  Transmission Date: 20140515
  Serious: Yes (Disabling)
  Sender: FDA-Public Use
  Company Number: None

PATIENT
  Age: 61 Year
  Sex: Female
  Weight: 99.79 kg

DRUGS (1)
  1. VYTORIN [Suspect]
     Dosage: 20MG FOUR TIMES DAILY TAKEN BY MOUTH
     Route: 048
     Dates: start: 20110101, end: 20130901

REACTIONS (6)
  - Depression [None]
  - Spinal column stenosis [None]
  - Muscle spasms [None]
  - Pain [None]
  - Muscle injury [None]
  - Condition aggravated [None]
